FAERS Safety Report 12011519 (Version 2)
Quarter: 2016Q1

REPORT INFORMATION
  Report Type: Report from Study
  Country: DE (occurrence: DE)
  Receive Date: 20160205
  Receipt Date: 20160301
  Transmission Date: 20160526
  Serious: Yes (Hospitalization)
  Sender: FDA-Public Use
  Company Number: DE-INCYTE CORPORATION-2015IN004815

PATIENT
  Sex: Male
  Weight: 74 kg

DRUGS (9)
  1. INCB018424 [Suspect]
     Active Substance: RUXOLITINIB
     Dosage: 4 DF OF 5 MG, QD
     Route: 048
     Dates: start: 20150728
  2. TAMSULOSIN [Concomitant]
     Active Substance: TAMSULOSIN
     Indication: BENIGN PROSTATIC HYPERPLASIA
     Dosage: 0.4 MG,  PER DAY (QD)
     Route: 065
     Dates: start: 20051124
  3. ATACAND [Concomitant]
     Active Substance: CANDESARTAN CILEXETIL
     Indication: HYPERTENSION
     Dosage: 8 MG, PER DAY (QD)
     Route: 065
     Dates: start: 20051124, end: 20150521
  4. DEKRISTOL [Concomitant]
     Active Substance: CHOLECALCIFEROL
     Indication: OSTEOPOROSIS
     Dosage: 2000 IU, (EVERY 14 DAYS)
     Route: 065
     Dates: start: 20150325
  5. NOVALGIN [Concomitant]
     Active Substance: METAMIZOLE SODIUM
     Indication: PAIN
     Dosage: 40 DRP, QD
     Route: 065
     Dates: start: 20151019
  6. NOVALGIN [Concomitant]
     Active Substance: METAMIZOLE SODIUM
     Indication: PAIN MANAGEMENT
  7. LENDORMIN [Concomitant]
     Active Substance: BROTIZOLAM
     Indication: PRODUCT USED FOR UNKNOWN INDICATION
     Dosage: 0.25 MG, PER DAY (QD)
     Route: 065
     Dates: start: 20120125
  8. ARANESP [Concomitant]
     Active Substance: DARBEPOETIN ALFA
     Indication: PRODUCT USED FOR UNKNOWN INDICATION
     Dosage: 150 IU, WEEKLY IF HAEMOGLOBIN WAS LESS THAN 11 G/DL
     Route: 065
     Dates: start: 20140915
  9. INCB018424 [Suspect]
     Active Substance: RUXOLITINIB
     Indication: MYELOFIBROSIS
     Dosage: UNK
     Route: 048
     Dates: start: 20150318, end: 20150728

REACTIONS (2)
  - Liposarcoma [Recovered/Resolved]
  - Second primary malignancy [Unknown]

NARRATIVE: CASE EVENT DATE: 20150817
